FAERS Safety Report 22073059 (Version 4)
Quarter: 2023Q2

REPORT INFORMATION
  Report Type: Report from Study
  Country: US (occurrence: US)
  Receive Date: 20230308
  Receipt Date: 20230609
  Transmission Date: 20230721
  Serious: No
  Sender: FDA-Public Use
  Company Number: US-002147023-NVSC2023US053033

PATIENT
  Sex: Female

DRUGS (2)
  1. PIQRAY [Suspect]
     Active Substance: ALPELISIB
     Indication: Product used for unknown indication
     Dosage: UNK
     Route: 048
     Dates: start: 20230301
  2. PIQRAY [Suspect]
     Active Substance: ALPELISIB
     Dosage: UNK, QOD
     Route: 048

REACTIONS (9)
  - Mouth swelling [Unknown]
  - Oral pain [Unknown]
  - Lip dry [Unknown]
  - Chapped lips [Unknown]
  - Fatigue [Unknown]
  - Nausea [Unknown]
  - Weight decreased [Unknown]
  - Blood glucose increased [Unknown]
  - Oral mucosal blistering [Unknown]
